FAERS Safety Report 7293032-X (Version None)
Quarter: 2011Q1

REPORT INFORMATION
  Report Type: 
  Country: None (occurrence: None)
  Receive Date: 20110215
  Receipt Date: 20110211
  Transmission Date: 20110831
  Serious: Yes (Other)
  Sender: FDA-Public Use
  Company Number: US-PFIZER INC-2010154486

PATIENT
  Sex: Female

DRUGS (3)
  1. FLUCONAZOLE [Concomitant]
     Indication: ANTIFUNGAL TREATMENT
     Dosage: UNK
     Dates: start: 20050101, end: 20090101
  2. VALTREX [Concomitant]
     Indication: HERPES VIRUS INFECTION
     Dosage: UNK
     Dates: start: 19950101, end: 20090101
  3. CHANTIX [Suspect]
     Indication: SMOKING CESSATION THERAPY
     Dosage: STARTER MONTH PACK AND CONTINUING MONTH PACK
     Dates: start: 20081101, end: 20090101

REACTIONS (5)
  - SUICIDE ATTEMPT [None]
  - NIGHTMARE [None]
  - HALLUCINATION, AUDITORY [None]
  - INSOMNIA [None]
  - DEPRESSION [None]
